FAERS Safety Report 7108070-7 (Version None)
Quarter: 2010Q4

REPORT INFORMATION
  Report Type: 
  Country: None (occurrence: None)
  Receive Date: 20101115
  Receipt Date: 20101115
  Transmission Date: 20110411
  Serious: Yes (Death)
  Sender: FDA-Public Use
  Company Number: None

PATIENT
  Sex: Female

DRUGS (1)
  1. RITUXIMAB [Suspect]
     Indication: RHEUMATOID ARTHRITIS
     Dates: start: 20100906

REACTIONS (6)
  - BRAIN HERNIATION [None]
  - CONFUSIONAL STATE [None]
  - ENCEPHALITIS [None]
  - HEADACHE [None]
  - HYDROCEPHALUS [None]
  - PYREXIA [None]
